FAERS Safety Report 6130746-9 (Version None)
Quarter: 2009Q1

REPORT INFORMATION
  Report Type: 
  Country: None (occurrence: None)
  Receive Date: 20090323
  Receipt Date: 20090308
  Transmission Date: 20090719
  Serious: Yes (Other)
  Sender: FDA-Public Use
  Company Number: 2007S1006596

PATIENT
  Age: 50 Year
  Sex: Male
  Weight: 95.2554 kg

DRUGS (8)
  1. PHOSPHOSODA FLAVOR NOT SPECIFIED [Suspect]
     Indication: COLONOSCOPY
     Dosage: 90 ML; TOTAL; PO
     Route: 048
     Dates: start: 20040805, end: 20040805
  2. PROZAC /00724401/ [Concomitant]
  3. AMITRIPTYLINE [Concomitant]
  4. PROTONIX /01263201/ [Concomitant]
  5. PRINIZIDE/ZESTORETIC [Concomitant]
  6. CRESTOR [Concomitant]
  7. LIPITOR [Concomitant]
  8. ASPIRIN [Concomitant]

REACTIONS (4)
  - DRUG TOXICITY [None]
  - HYPERPHOSPHATAEMIA [None]
  - NEPHROCALCINOSIS [None]
  - RENAL FAILURE CHRONIC [None]
